APPROVED DRUG PRODUCT: ANTHELIOS SX
Active Ingredient: AVOBENZONE; ECAMSULE; OCTOCRYLENE
Strength: 2%;2%;10%
Dosage Form/Route: CREAM;TOPICAL
Application: N021502 | Product #001
Applicant: LOREAL USA PRODUCTS INC
Approved: Jul 21, 2006 | RLD: Yes | RS: Yes | Type: OTC